FAERS Safety Report 6634878-8 (Version None)
Quarter: 2010Q1

REPORT INFORMATION
  Report Type: 
  Country: None (occurrence: None)
  Receive Date: 20100315
  Receipt Date: 20100302
  Transmission Date: 20100710
  Serious: Yes (Other)
  Sender: FDA-Public Use
  Company Number: CA-PFIZER INC-2010007901

PATIENT
  Age: 46 Year
  Sex: Female
  Weight: 104.31 kg

DRUGS (12)
  1. CHAMPIX [Suspect]
     Indication: SMOKING CESSATION THERAPY
     Dosage: UNK
     Dates: start: 20070101
  2. CHAMPIX [Suspect]
     Dosage: 1 MG, 2X/DAY
     Dates: start: 20091115, end: 20100111
  3. METFORMIN [Concomitant]
     Indication: DIABETES MELLITUS
     Dosage: 500 MG, 4X/DAY
     Dates: start: 20020101
  4. HUMULIN N [Concomitant]
     Indication: DIABETES MELLITUS
     Dosage: 45 IU, 2X/DAY
     Dates: start: 20080901
  5. ESTRACE [Concomitant]
     Indication: HYSTERECTOMY
     Dosage: 2 MG, 1X/DAY
     Dates: start: 19900101
  6. ONE-A-DAY [Concomitant]
     Dosage: ONE A DAY
  7. CRESTOR [Concomitant]
     Indication: BLOOD CALCIUM
     Dosage: 10 MG, 1X/DAY
     Dates: start: 20090101
  8. ALTACE [Concomitant]
     Indication: BLOOD PRESSURE
     Dosage: 10/25MG X1/DAILY
     Dates: start: 20090101
  9. OMEPRAZOLE [Concomitant]
     Indication: GASTRIC OPERATION
     Dosage: 20 MG, 1X/DAY
     Dates: start: 19890101
  10. CITALOPRAM [Concomitant]
     Indication: DEPRESSION
     Dosage: 60 MG, 1X/DAY
     Dates: start: 19910101
  11. CLONAZEPAM [Concomitant]
     Dosage: UNK MG, 1X/DAY
  12. WELLBUTRIN XL [Concomitant]
     Indication: DEPRESSION
     Dosage: 150 MG, 1X/DAY
     Dates: start: 20090601

REACTIONS (5)
  - AGGRESSION [None]
  - PERSONALITY CHANGE [None]
  - ROAD TRAFFIC ACCIDENT [None]
  - STRESS [None]
  - SUICIDAL IDEATION [None]
